FAERS Safety Report 11526499 (Version 1)
Quarter: 2015Q3

REPORT INFORMATION
  Report Type: Spontaneous
  Country: US (occurrence: US)
  Receive Date: 20150903
  Receipt Date: 20150903
  Transmission Date: 20151125
  Serious: No
  Sender: FDA-Public Use
  Company Number: US-ELI_LILLY_AND_COMPANY-US201310009947

PATIENT
  Sex: Female

DRUGS (1)
  1. CYMBALTA [Suspect]
     Active Substance: DULOXETINE HYDROCHLORIDE
     Indication: PAIN
     Dosage: 30 MG, QD
     Route: 065

REACTIONS (13)
  - Blood pressure fluctuation [Unknown]
  - Paraesthesia [Unknown]
  - Abdominal pain lower [Unknown]
  - Gastric pH decreased [Unknown]
  - Burning sensation [Unknown]
  - Initial insomnia [Unknown]
  - Decreased appetite [Unknown]
  - Insomnia [Unknown]
  - Hypoaesthesia [Unknown]
  - Joint crepitation [Unknown]
  - Vision blurred [Unknown]
  - Rash [Unknown]
  - Drug ineffective [Unknown]
